FAERS Safety Report 8070891-4 (Version None)
Quarter: 2012Q1

REPORT INFORMATION
  Report Type: 
  Country: None (occurrence: None)
  Receive Date: 20120125
  Receipt Date: 20120120
  Transmission Date: 20120608
  Serious: No
  Sender: FDA-Public Use
  Company Number: US-PFIZER INC-2012017176

PATIENT
  Sex: Female
  Weight: 64.9 kg

DRUGS (5)
  1. DOXAZOSIN [Concomitant]
     Dosage: 1 MG, UNK
  2. CELEXA [Suspect]
     Indication: DEPRESSION
     Dosage: UNK
  3. METOPROLOL [Concomitant]
     Dosage: 25 MG, UNK
  4. DIOVAN HCT [Concomitant]
     Dosage: UNK
  5. EFFEXOR XR [Suspect]
     Indication: DEPRESSION
     Dosage: UNK

REACTIONS (1)
  - DRUG INEFFECTIVE [None]
